FAERS Safety Report 8094364-8 (Version None)
Quarter: 2012Q1

REPORT INFORMATION
  Report Type: 
  Country: None (occurrence: None)
  Receive Date: 20120130
  Receipt Date: 20120123
  Transmission Date: 20120608
  Serious: No
  Sender: FDA-Public Use
  Company Number: US-PFIZER INC-2012019221

PATIENT
  Age: 48 Year
  Sex: Female
  Weight: 119 kg

DRUGS (5)
  1. REVATIO [Suspect]
     Dosage: UNK
  2. AMBRISENTAN [Suspect]
     Dosage: UNK
  3. TYVASO [Suspect]
     Indication: PULMONARY ARTERIAL HYPERTENSION
     Dosage: 216 MCG (54 MCG, 4 IN 1)
     Dates: start: 20110729
  4. OXYGEN [Suspect]
     Dosage: UNK
  5. COUMADIN [Suspect]
     Dosage: UNK

REACTIONS (4)
  - CHEST PAIN [None]
  - SWELLING [None]
  - EPISTAXIS [None]
  - DIZZINESS [None]
